FAERS Safety Report 24578611 (Version 1)
Quarter: 2024Q4

REPORT INFORMATION
  Report Type: Report from Study
  Country: AU (occurrence: AU)
  Receive Date: 20241105
  Receipt Date: 20241105
  Transmission Date: 20250114
  Serious: Yes (Death)
  Sender: CSL BEHRING
  Company Number: AU-BEH-2023166048

PATIENT
  Age: 65 Year
  Sex: Female

DRUGS (5)
  1. HIZENTRA [Suspect]
     Active Substance: HUMAN IMMUNOGLOBULIN G
     Indication: Secondary immunodeficiency
     Dosage: 5 GRAM, QW
     Route: 058
     Dates: start: 20231123, end: 20231123
  2. HIZENTRA [Suspect]
     Active Substance: HUMAN IMMUNOGLOBULIN G
     Dosage: 5 GRAM, QW, (PRODUCT STRENGTH REPORTED 20 %)
     Route: 058
  3. PREDNISOLONE [Concomitant]
     Active Substance: PREDNISOLONE
  4. APIXABAN [Concomitant]
     Active Substance: APIXABAN
  5. PANTOPRAZOLE [Concomitant]
     Active Substance: PANTOPRAZOLE

REACTIONS (2)
  - Death [Fatal]
  - Injection site swelling [Recovering/Resolving]

NARRATIVE: CASE EVENT DATE: 20231123
